FAERS Safety Report 12248368 (Version 3)
Quarter: 2023Q2

REPORT INFORMATION
  Report Type: Other
  Country: US (occurrence: None)
  Receive Date: 20160408
  Receipt Date: 20230526
  Transmission Date: 20230722
  Serious: Yes (Death, Other)
  Sender: FDA-Public Use
  Company Number: US-ROCHE-1736513

PATIENT

DRUGS (15)
  1. RITUXIMAB [Suspect]
     Active Substance: RITUXIMAB
     Indication: Acute lymphocytic leukaemia
     Route: 042
  2. CYCLOPHOSPHAMIDE [Suspect]
     Active Substance: CYCLOPHOSPHAMIDE
     Indication: Acute lymphocytic leukaemia
     Route: 042
  3. VINCRISTINE [Suspect]
     Active Substance: VINCRISTINE
     Indication: Acute lymphocytic leukaemia
     Route: 042
  4. DOXORUBICIN [Suspect]
     Active Substance: DOXORUBICIN
     Indication: Acute lymphocytic leukaemia
     Route: 042
  5. DEXAMETHASONE [Suspect]
     Active Substance: DEXAMETHASONE
     Indication: Acute lymphocytic leukaemia
     Dosage: 40-20 MG
     Route: 065
  6. METHOTREXATE [Suspect]
     Active Substance: METHOTREXATE
     Indication: Acute lymphocytic leukaemia
     Dosage: 750 TO 375 MG/SQ.M),
     Route: 065
  7. METHOTREXATE [Suspect]
     Active Substance: METHOTREXATE
     Dosage: DAYS 2 AND 7 OF EACH CYCLE FOR A TOTAL OF 12 DOSES
     Route: 037
  8. CYTARABINE [Suspect]
     Active Substance: CYTARABINE
     Indication: Acute lymphocytic leukaemia
     Dosage: 2 TO 1 G/SQ.M
     Route: 065
  9. CYTARABINE [Suspect]
     Active Substance: CYTARABINE
     Dosage: DAYS 2 AND 7 OF EACH CYCLE FOR A TOTAL OF 12 DOSES
     Route: 037
  10. PONATINIB [Suspect]
     Active Substance: PONATINIB
     Indication: Acute lymphocytic leukaemia
     Dosage: FIRST 14 DAYS OF CYCLE 1 THEN CONTINUOUSLY FOR THE NEXT SEVEN CYCLES AND THEN FOR 2 YEARS WITH MONTH
     Route: 048
  11. DASATINIB [Suspect]
     Active Substance: DASATINIB
     Indication: Acute lymphocytic leukaemia
     Route: 065
  12. PREDNISONE [Suspect]
     Active Substance: PREDNISONE
     Indication: Acute lymphocytic leukaemia
     Route: 048
  13. IMATINIB [Suspect]
     Active Substance: IMATINIB
     Indication: Acute lymphocytic leukaemia
     Route: 065
  14. INOTUZUMAB OZOGAMICIN [Suspect]
     Active Substance: INOTUZUMAB OZOGAMICIN
     Indication: Acute lymphocytic leukaemia
     Route: 065
  15. BLINATUMOMAB [Suspect]
     Active Substance: BLINATUMOMAB
     Indication: Acute lymphocytic leukaemia
     Route: 065

REACTIONS (32)
  - Sepsis [Fatal]
  - Myocardial infarction [Fatal]
  - Renal vein thrombosis [Unknown]
  - Pulmonary embolism [Unknown]
  - Infection [Unknown]
  - Rash [Unknown]
  - Pancreatitis [Unknown]
  - Alanine aminotransferase increased [Unknown]
  - Aspartate aminotransferase increased [Unknown]
  - Blood bilirubin increased [Unknown]
  - Amylase increased [Unknown]
  - Lipase increased [Unknown]
  - Hypertension [Unknown]
  - Haemorrhage [Unknown]
  - Mucosal inflammation [Unknown]
  - Abdominal pain [Unknown]
  - Nausea [Unknown]
  - Diarrhoea [Unknown]
  - Vomiting [Unknown]
  - Renal injury [Unknown]
  - Decreased appetite [Unknown]
  - Pericardial effusion [Unknown]
  - Acute respiratory distress syndrome [Unknown]
  - Haemophagocytic lymphohistiocytosis [Unknown]
  - Atrial fibrillation [Unknown]
  - Headache [Unknown]
  - Neuropathy peripheral [Unknown]
  - Dyspnoea [Unknown]
  - Constipation [Unknown]
  - Angina pectoris [Unknown]
  - Angina unstable [Unknown]
  - Deep vein thrombosis [Unknown]
